FAERS Safety Report 23883764 (Version 1)
Quarter: 2024Q2

REPORT INFORMATION
  Report Type: Spontaneous
  Country: US (occurrence: None)
  Receive Date: 20240520
  Receipt Date: 20240520
  Transmission Date: 20240715
  Serious: No
  Sender: FDA-Public Use
  Company Number: None

PATIENT

DRUGS (2)
  1. GLUCAGON [Suspect]
     Active Substance: GLUCAGON\GLUCAGON HYDROCHLORIDE\WATER
  2. INSULIN NOS [Suspect]
     Active Substance: INSULIN NOS

REACTIONS (7)
  - Incorrect dose administered [None]
  - Hypoglycaemia [None]
  - Wrong technique in product usage process [None]
  - Syringe issue [None]
  - Wrong device used [None]
  - Product label confusion [None]
  - Product packaging confusion [None]
